FAERS Safety Report 9798829 (Version 3)
Quarter: 2014Q3

REPORT INFORMATION
  Report Type: Spontaneous
  Country: GB (occurrence: None)
  Receive Date: 20131231
  Receipt Date: 20140708
  Transmission Date: 20150326
  Serious: Yes (Other)
  Sender: FDA-Public Use
  Company Number: AUR-APL-2013-10693

PATIENT
  Age: 49 Year
  Sex: Female
  Weight: 80 kg

DRUGS (3)
  1. FENTANYL (FENTANYL) [Concomitant]
     Active Substance: FENTANYL
  2. OXYCODONE (OXYCODONE) [Concomitant]
     Active Substance: OXYCODONE
  3. SERTRALINE [Suspect]
     Active Substance: SERTRALINE HYDROCHLORIDE
     Indication: DEPRESSION
     Route: 048
     Dates: start: 20130730, end: 201311

REACTIONS (7)
  - Middle insomnia [None]
  - Abdominal pain [None]
  - Weight increased [None]
  - Fear [None]
  - Flatulence [None]
  - Osteoarthritis [None]
  - Diarrhoea [None]

NARRATIVE: CASE EVENT DATE: 201308
